FAERS Safety Report 13711772 (Version 4)
Quarter: 2017Q3

REPORT INFORMATION
  Report Type: Report from Study
  Country: US (occurrence: US)
  Receive Date: 20170703
  Receipt Date: 20170719
  Transmission Date: 20171127
  Serious: Yes (Other)
  Sender: FDA-Public Use
  Company Number: PHEH2017US020355

PATIENT
  Age: 62 Year
  Sex: Female

DRUGS (1)
  1. COSENTYX [Suspect]
     Active Substance: SECUKINUMAB
     Indication: PRODUCT USED FOR UNKNOWN INDICATION
     Dosage: 300 MG, QW
     Route: 058
     Dates: start: 20170509

REACTIONS (12)
  - Systemic lupus erythematosus [Unknown]
  - Anxiety [Unknown]
  - Fluid retention [Unknown]
  - Weight increased [Unknown]
  - Oropharyngeal pain [Unknown]
  - Nasal congestion [Unknown]
  - Blood glucose increased [Unknown]
  - Dysphagia [Unknown]
  - Peripheral swelling [Unknown]
  - Blood pressure increased [Unknown]
  - Oropharyngeal plaque [Unknown]
  - Dyspepsia [Unknown]

NARRATIVE: CASE EVENT DATE: 20170509
